FAERS Safety Report 18076054 (Version 1)
Quarter: 2020Q3

REPORT INFORMATION
  Report Type: Spontaneous
  Country: US (occurrence: US)
  Receive Date: 20200727
  Receipt Date: 20200727
  Transmission Date: 20201103
  Serious: No
  Sender: FDA-Public Use
  Company Number: US-ABBVIE-20K-163-3427059-00

PATIENT
  Sex: Female

DRUGS (1)
  1. SYNTHROID [Suspect]
     Active Substance: LEVOTHYROXINE SODIUM
     Indication: PRODUCT USED FOR UNKNOWN INDICATION
     Route: 048

REACTIONS (6)
  - Weight fluctuation [Recovering/Resolving]
  - Therapeutic product effect decreased [Unknown]
  - Freezing phenomenon [Recovered/Resolved]
  - Strabismus [Recovered/Resolved]
  - Dysphonia [Recovered/Resolved]
  - Alopecia [Recovered/Resolved]
